FAERS Safety Report 8620715-9 (Version None)
Quarter: 2012Q3

REPORT INFORMATION
  Report Type: 
  Country: None (occurrence: None)
  Receive Date: 20120824
  Receipt Date: 20120815
  Transmission Date: 20120928
  Serious: Yes (Hospitalization)
  Sender: FDA-Public Use
  Company Number: US-ASTRAZENECA-2012SE57603

PATIENT
  Age: 74 Year
  Sex: Female
  Weight: 70.3 kg

DRUGS (7)
  1. NEXIUM [Suspect]
     Indication: GASTROOESOPHAGEAL REFLUX DISEASE
     Route: 048
     Dates: end: 20110101
  2. NIFEDIPINE [Concomitant]
     Indication: BLOOD PRESSURE ABNORMAL
     Route: 048
  3. PROPRANOLOL [Concomitant]
     Indication: BLOOD PRESSURE ABNORMAL
     Route: 048
  4. LEVOXYL [Concomitant]
     Indication: THYROID DISORDER
     Route: 048
  5. LISINOPRIL [Concomitant]
     Indication: BLOOD PRESSURE ABNORMAL
     Route: 048
  6. NEXIUM [Suspect]
     Route: 048
     Dates: start: 20110101
  7. NEXIUM [Suspect]
     Route: 048

REACTIONS (5)
  - GASTROOESOPHAGEAL REFLUX DISEASE [None]
  - CAROTID ARTERY OCCLUSION [None]
  - VERTIGO [None]
  - VITAMIN D DECREASED [None]
  - OFF LABEL USE [None]
